FAERS Safety Report 15983420 (Version 1)
Quarter: 2019Q1

REPORT INFORMATION
  Report Type: Spontaneous
  Country: HU (occurrence: HU)
  Receive Date: 20190220
  Receipt Date: 20190220
  Transmission Date: 20190418
  Serious: Yes (Other)
  Sender: FDA-Public Use
  Company Number: HU-ROCHE-2263887

PATIENT
  Age: 86 Year

DRUGS (4)
  1. BENDAMUSTINE [Suspect]
     Active Substance: BENDAMUSTINE
     Indication: MALIGNANT NEOPLASM PROGRESSION
     Route: 065
     Dates: start: 201608
  2. RITUXIMAB. [Suspect]
     Active Substance: RITUXIMAB
     Indication: MANTLE CELL LYMPHOMA
     Dosage: UNK
     Route: 065
     Dates: start: 2012
  3. BENDAMUSTINE [Suspect]
     Active Substance: BENDAMUSTINE
     Indication: METASTASES TO THE MEDIASTINUM
     Dosage: UNK
     Route: 065
  4. CHLORAMBUCIL [Concomitant]
     Active Substance: CHLORAMBUCIL
     Indication: MANTLE CELL LYMPHOMA
     Route: 065

REACTIONS (5)
  - Dermatitis [Unknown]
  - Skin plaque [Unknown]
  - Metastases to the mediastinum [Unknown]
  - Malignant neoplasm progression [Unknown]
  - Mycosis fungoides [Unknown]

NARRATIVE: CASE EVENT DATE: 201608
